FAERS Safety Report 25418785 (Version 1)
Quarter: 2025Q2

REPORT INFORMATION
  Report Type: Spontaneous
  Country: US (occurrence: None)
  Receive Date: 20250609
  Receipt Date: 20250609
  Transmission Date: 20250716
  Serious: Yes (Life-Threatening)
  Sender: FDA-CTU
  Company Number: None

PATIENT
  Age: 68 Year
  Sex: Male
  Weight: 108 kg

DRUGS (10)
  1. PLUVICTO [Suspect]
     Active Substance: LUTETIUM LU-177 VIPIVOTIDE TETRAXETAN
     Indication: Hormone-refractory prostate cancer
     Route: 042
     Dates: start: 20250502, end: 20250502
  2. LEUPROLIDE [Concomitant]
     Active Substance: LEUPROLIDE
     Dates: start: 20231107
  3. AMLODIPINE [Concomitant]
     Active Substance: AMLODIPINE BESYLATE
     Dates: start: 20150101
  4. ASPIRIN [Concomitant]
     Active Substance: ASPIRIN
     Dates: start: 20150101
  5. Vit K2 and Vit D3 with calcium [Concomitant]
  6. Cyanocombalamin [Concomitant]
  7. METOPROLOL [Concomitant]
     Active Substance: METOPROLOL
  8. MYRBETRIQ [Concomitant]
     Active Substance: MIRABEGRON
  9. TAMSULOSIN [Concomitant]
     Active Substance: TAMSULOSIN
  10. VITAMIN C [Concomitant]
     Active Substance: ASCORBIC ACID

REACTIONS (3)
  - Acute cholecystitis necrotic [None]
  - Perforation bile duct [None]
  - Pancreatitis acute [None]

NARRATIVE: CASE EVENT DATE: 20250524
